FAERS Safety Report 9383896 (Version 2)
Quarter: 2013Q3

REPORT INFORMATION
  Report Type: Spontaneous
  Country: FR (occurrence: FR)
  Receive Date: 20130705
  Receipt Date: 20130813
  Transmission Date: 20140515
  Serious: Yes (Other)
  Sender: FDA-Public Use
  Company Number: FR-ROCHE-1244597

PATIENT
  Age: 48 Year
  Sex: Female

DRUGS (18)
  1. MIRCERA [Suspect]
     Indication: NEPHROGENIC ANAEMIA
     Route: 042
     Dates: start: 200910
  2. MIRCERA [Suspect]
     Route: 042
     Dates: start: 201210
  3. MIRCERA [Suspect]
     Route: 042
     Dates: start: 20130621
  4. MIRCERA [Suspect]
     Route: 042
     Dates: start: 20091015, end: 20130701
  5. MIRCERA [Suspect]
     Route: 065
     Dates: start: 20091015
  6. MIRCERA [Suspect]
     Route: 065
     Dates: start: 20101006
  7. MIRCERA [Suspect]
     Route: 065
     Dates: start: 20110601, end: 20120210
  8. MIRCERA [Suspect]
     Route: 065
     Dates: start: 20121012, end: 20130127
  9. MIRCERA [Suspect]
     Route: 065
     Dates: start: 20130128, end: 20130419
  10. MIRCERA [Suspect]
     Route: 065
     Dates: start: 20130419, end: 20130621
  11. MIRCERA [Suspect]
     Route: 065
     Dates: start: 20130621, end: 20130701
  12. NEORECORMON [Suspect]
     Indication: ANAEMIA
     Route: 042
     Dates: start: 20120210, end: 20121011
  13. COVERSYL [Suspect]
     Indication: HYPERTENSION
     Route: 048
     Dates: start: 20100129, end: 20130114
  14. LASILIX [Concomitant]
     Indication: ANURIA
     Route: 048
     Dates: start: 2008
  15. RENVELA [Concomitant]
     Indication: HYPERPHOSPHATAEMIA
     Route: 048
     Dates: start: 20110819
  16. MIMPARA [Concomitant]
     Indication: HYPERPARATHYROIDISM
     Route: 048
     Dates: start: 20110701
  17. UVEDOSE [Concomitant]
     Route: 048
     Dates: start: 20110701
  18. ARANESP [Concomitant]
     Route: 065
     Dates: start: 20130805

REACTIONS (1)
  - Anaemia [Recovered/Resolved]
